FAERS Safety Report 6375877-3 (Version None)
Quarter: 2009Q3

REPORT INFORMATION
  Report Type: 
  Country: None (occurrence: None)
  Receive Date: 20090924
  Receipt Date: 20090915
  Transmission Date: 20100115
  Serious: No
  Sender: FDA-Public Use
  Company Number: US-B.I. PHARMACEUTICALS,INC./RIDGEFIELD-2009-BP-10874BP

PATIENT
  Sex: Male

DRUGS (8)
  1. FLOMAX [Suspect]
     Indication: BENIGN PROSTATIC HYPERPLASIA
     Dosage: 0.4 MG
     Route: 048
     Dates: start: 20090801, end: 20090831
  2. FUROSEMIDE [Concomitant]
     Indication: HYPERTENSION
  3. EXFORGE [Concomitant]
     Indication: HYPERTENSION
  4. LIPITOR [Concomitant]
     Indication: BLOOD CHOLESTEROL INCREASED
  5. TRICOR [Concomitant]
     Indication: BLOOD CHOLESTEROL INCREASED
  6. NEXIUM [Concomitant]
     Indication: GASTROOESOPHAGEAL REFLUX DISEASE
  7. CLARINEX [Concomitant]
     Indication: SEASONAL ALLERGY
  8. ASPIRIN [Concomitant]
     Indication: PROPHYLAXIS

REACTIONS (2)
  - CHEST DISCOMFORT [None]
  - VENTRICULAR EXTRASYSTOLES [None]
